FAERS Safety Report 23992087 (Version 1)
Quarter: 2024Q2

REPORT INFORMATION
  Report Type: Spontaneous
  Country: US (occurrence: US)
  Receive Date: 20240620
  Receipt Date: 20240620
  Transmission Date: 20240717
  Serious: No
  Sender: FDA-Public Use
  Company Number: US-CHEPLA-2024007321

PATIENT
  Age: 52 Year
  Sex: Female

DRUGS (4)
  1. GANCICLOVIR [Suspect]
     Active Substance: GANCICLOVIR
     Indication: Cytomegalovirus gastroenteritis
     Route: 042
  2. TACROLIMUS [Suspect]
     Active Substance: TACROLIMUS
     Indication: Cytomegalovirus gastroenteritis
     Route: 065
  3. FOSCARNET [Suspect]
     Active Substance: FOSCARNET
     Indication: Cytomegalovirus gastroenteritis
     Route: 065
  4. MARIBAVIR [Suspect]
     Active Substance: MARIBAVIR
     Indication: Cytomegalovirus gastroenteritis
     Route: 065

REACTIONS (1)
  - Drug resistance [Unknown]
